FAERS Safety Report 7617582-9 (Version None)
Quarter: 2011Q3

REPORT INFORMATION
  Report Type: 
  Country: None (occurrence: None)
  Receive Date: 20110718
  Receipt Date: 20110704
  Transmission Date: 20111222
  Serious: Yes (Other)
  Sender: FDA-Public Use
  Company Number: JP-MYLANLABS-2011S1014017

PATIENT
  Age: 58 Year
  Sex: Male

DRUGS (7)
  1. IRINOTECAN HCL [Suspect]
     Indication: LUNG NEOPLASM MALIGNANT
     Route: 065
  2. CISPLATIN [Suspect]
     Indication: LUNG NEOPLASM MALIGNANT
     Route: 065
  3. GEMCITABINE [Suspect]
     Indication: LUNG NEOPLASM MALIGNANT
     Route: 065
  4. CARBOPLATIN [Suspect]
     Indication: LUNG NEOPLASM MALIGNANT
     Route: 065
  5. VINORELBINE [Suspect]
     Indication: LUNG NEOPLASM MALIGNANT
     Route: 065
  6. DOCETAXEL [Suspect]
     Indication: LUNG NEOPLASM MALIGNANT
     Route: 065
  7. LANSOPRAZOLE [Concomitant]
     Indication: GASTRIC ULCER
     Route: 065

REACTIONS (1)
  - BRUGADA SYNDROME [None]
